FAERS Safety Report 8037505-0 (Version None)
Quarter: 2012Q1

REPORT INFORMATION
  Report Type: 
  Country: None (occurrence: None)
  Receive Date: 20120111
  Receipt Date: 20120106
  Transmission Date: 20120608
  Serious: Yes (Other)
  Sender: FDA-Public Use
  Company Number: US-PFIZER INC-2012004983

PATIENT
  Sex: Female
  Weight: 89.342 kg

DRUGS (1)
  1. NEURONTIN [Suspect]
     Indication: RESTLESS LEGS SYNDROME
     Dosage: 300MG 2-3 TIMES A DAY
     Dates: start: 20020101

REACTIONS (1)
  - BRONCHITIS [None]
